FAERS Safety Report 11362172 (Version 1)
Quarter: 2015Q3

REPORT INFORMATION
  Report Type: Spontaneous
  Country: ES (occurrence: ES)
  Receive Date: 20150810
  Receipt Date: 20150810
  Transmission Date: 20151125
  Serious: Yes (Hospitalization)
  Sender: FDA-Public Use
  Company Number: ES-FRESENIUS KABI-FK201503751

PATIENT
  Age: 69 Year
  Sex: Female

DRUGS (2)
  1. HALOPERIDOL INJECTION (MANUFACTURER UNKNOWN) (HALOPERIDOL LACTATE) (HALOPERIDOL LACTATE) [Suspect]
     Active Substance: HALOPERIDOL LACTATE
     Indication: SCHIZOPHRENIA, PARANOID TYPE
     Route: 065
  2. HALOPERIDOL INJECTION (MANUFACTURER UNKNOWN) (HALOPERIDOL LACTATE) (HALOPERIDOL LACTATE) [Suspect]
     Active Substance: HALOPERIDOL LACTATE
     Route: 065

REACTIONS (7)
  - Hypoglycaemia [None]
  - Hypothermia [Recovered/Resolved]
  - Metabolic acidosis [None]
  - General physical health deterioration [None]
  - Muscle rigidity [None]
  - Depressed level of consciousness [None]
  - Clonus [None]
